FAERS Safety Report 7400281-6 (Version None)
Quarter: 2011Q2

REPORT INFORMATION
  Report Type: 
  Country: None (occurrence: None)
  Receive Date: 20110405
  Receipt Date: 20110405
  Transmission Date: 20111010
  Serious: Yes (Hospitalization)
  Sender: FDA-Public Use
  Company Number: None

PATIENT
  Age: 41 Year
  Sex: Female
  Weight: 86.637 kg

DRUGS (2)
  1. NIASPAN [Suspect]
     Indication: BLOOD TRIGLYCERIDES INCREASED
     Dosage: TAKE 1 TABLET Y MOUTH DEDTIME
     Dates: start: 20110401, end: 20110402
  2. NIASPAN [Suspect]

REACTIONS (8)
  - BURNING SENSATION [None]
  - DIZZINESS [None]
  - NAUSEA [None]
  - INCOHERENT [None]
  - DYSPNOEA [None]
  - FEELING HOT [None]
  - CHEST PAIN [None]
  - HYPOAESTHESIA ORAL [None]
